FAERS Safety Report 21821878 (Version 2)
Quarter: 2023Q1

REPORT INFORMATION
  Report Type: Spontaneous
  Country: US (occurrence: US)
  Receive Date: 20230105
  Receipt Date: 20230108
  Transmission Date: 20230417
  Serious: No
  Sender: FDA-Public Use
  Company Number: US-SA-SAC20230104000957

PATIENT
  Age: 56 Year
  Sex: Female

DRUGS (1)
  1. KEVZARA [Suspect]
     Active Substance: SARILUMAB
     Indication: Osteoporosis
     Dosage: 200 MG, QOW
     Route: 058
     Dates: start: 20221118, end: 2022

REACTIONS (5)
  - Osteoporosis [Unknown]
  - Pain [Unknown]
  - Condition aggravated [Unknown]
  - Eye operation [Unknown]
  - Product use in unapproved indication [Unknown]

NARRATIVE: CASE EVENT DATE: 20221118
